FAERS Safety Report 8016972-2 (Version None)
Quarter: 2012Q1

REPORT INFORMATION
  Report Type: 
  Country: None (occurrence: None)
  Receive Date: 20120102
  Receipt Date: 20111227
  Transmission Date: 20120608
  Serious: Yes (Life-Threatening, Hospitalization, Other)
  Sender: FDA-Public Use
  Company Number: PHHY2011FR112590

PATIENT
  Sex: Male
  Weight: 18 kg

DRUGS (7)
  1. KIDROLASE [Suspect]
     Dosage: 4800 IU, UNK
     Route: 030
     Dates: start: 20111006, end: 20111014
  2. CERUBIDINE [Suspect]
     Dosage: 31 MG, UNK
     Dates: start: 20111006, end: 20111013
  3. CYTARABINE [Suspect]
     Dosage: 25 MG, UNK
     Route: 037
     Dates: start: 20111010, end: 20111014
  4. CYCLOPHOSPHAMIDE [Suspect]
     Dosage: 780 MG, UNK
     Route: 042
     Dates: start: 20111006
  5. VINCRISTINE SULFATE [Suspect]
     Dosage: 1.2 MG, UNK
     Route: 042
     Dates: start: 20111006, end: 20111013
  6. GLEEVEC [Suspect]
     Dosage: 200 MG, QD
     Route: 048
     Dates: start: 20111013, end: 20111021
  7. METHOTREXATE [Suspect]
     Dosage: 12 MG, UNK
     Route: 037
     Dates: start: 20111003, end: 20111014

REACTIONS (14)
  - PERICARDIAL EFFUSION [None]
  - SEPSIS [None]
  - CANDIDIASIS [None]
  - STOMATOCOCCAL INFECTION [None]
  - HYPOXIA [None]
  - URINE OUTPUT DECREASED [None]
  - PLEURAL EFFUSION [None]
  - ASCITES [None]
  - APLASIA [None]
  - ORAL DISORDER [None]
  - GENERALISED OEDEMA [None]
  - STAPHYLOCOCCAL INFECTION [None]
  - ACUTE RESPIRATORY DISTRESS SYNDROME [None]
  - PYREXIA [None]
